FAERS Safety Report 7990363-2 (Version None)
Quarter: 2011Q4

REPORT INFORMATION
  Report Type: 
  Country: None (occurrence: None)
  Receive Date: 20111219
  Receipt Date: 20110517
  Transmission Date: 20120403
  Serious: No
  Sender: FDA-Public Use
  Company Number: US-ASTRAZENECA-2011SE29998

PATIENT
  Age: 57 Year
  Sex: Female
  Weight: 55.8 kg

DRUGS (6)
  1. CRESTOR [Suspect]
     Indication: HYPERCHOLESTEROLAEMIA
     Route: 048
     Dates: start: 20060101, end: 20110101
  2. VITAMIN TAB [Concomitant]
  3. PREVACID [Concomitant]
  4. ASPIRIN [Concomitant]
  5. VITAMIN D [Concomitant]
  6. CITRICAL [Concomitant]

REACTIONS (5)
  - WEIGHT DECREASED [None]
  - GLUCOSE TOLERANCE IMPAIRED [None]
  - MYALGIA [None]
  - ENZYME ABNORMALITY [None]
  - RED BLOOD CELL SEDIMENTATION RATE INCREASED [None]
